FAERS Safety Report 5538348-X (Version None)
Quarter: 2007Q4

REPORT INFORMATION
  Report Type: 
  Country: None (occurrence: None)
  Receive Date: 20071205
  Receipt Date: 20071029
  Transmission Date: 20080405
  Serious: Yes (Hospitalization)
  Sender: FDA-Public Use
  Company Number: 57194/ 111

PATIENT
  Age: 44 Year
  Sex: Male

DRUGS (4)
  1. TERBINAFINE [Suspect]
     Dosage: ORAL
     Route: 048
  2. AMLODIPINE (AMLODIPINE, 10MG) [Concomitant]
  3. CARBIMAZOLE (CARBIMAZOLE, 5 MG) [Concomitant]
  4. DOXAZOSIN (DOXAZOSIN, 4 MG) [Concomitant]

REACTIONS (1)
  - MALLORY-WEISS SYNDROME [None]
